FAERS Safety Report 5782943-X (Version None)
Quarter: 2008Q2

REPORT INFORMATION
  Report Type: 
  Country: None (occurrence: None)
  Receive Date: 20080619
  Receipt Date: 20080603
  Transmission Date: 20081010
  Serious: Yes (Death)
  Sender: FDA-Public Use
  Company Number: 8033413

PATIENT
  Age: 57 Year
  Sex: Female

DRUGS (6)
  1. PREDNISOLONE [Suspect]
     Dosage: 8 MG 1/D PO
     Route: 048
  2. PREDNISOLONE [Suspect]
     Dosage: 2/D PO
     Route: 048
  3. CYCLOSPORINE [Suspect]
     Indication: IMMUNOSUPPRESSION
     Dosage: 50 MG 2/D PO
     Route: 048
  4. PREDNISOLONE [Suspect]
     Indication: IMMUNOSUPPRESSION
     Dosage: 2/D PO
     Route: 048
  5. CYCLOPHOSPHAMIDE [Concomitant]
  6. AZATHIOPRINE [Concomitant]

REACTIONS (6)
  - ASCITES [None]
  - BONE MARROW FAILURE [None]
  - POST TRANSPLANT LYMPHOPROLIFERATIVE DISORDER [None]
  - STAPHYLOCOCCAL SEPSIS [None]
  - THERAPEUTIC RESPONSE DECREASED [None]
  - TRANSAMINASES INCREASED [None]
